FAERS Safety Report 17518657 (Version 2)
Quarter: 2020Q1

REPORT INFORMATION
  Report Type: Report from Study
  Country: US (occurrence: US)
  Receive Date: 20200309
  Receipt Date: 20200323
  Transmission Date: 20200409
  Serious: Yes (Other)
  Sender: FDA-Public Use
  Company Number: US-GILEAD-2020-0454140

PATIENT
  Sex: Female

DRUGS (19)
  1. IRONA [Concomitant]
  2. SYMBICORT [Concomitant]
     Active Substance: BUDESONIDE\FORMOTEROL FUMARATE DIHYDRATE
  3. VENTOLIN [Concomitant]
     Active Substance: ALBUTEROL SULFATE
  4. B COMPLEX [VITAMIN B COMPLEX] [Concomitant]
  5. IRON [Concomitant]
     Active Substance: IRON
  6. VITAMIN A-D [Concomitant]
     Active Substance: ERGOCALCIFEROL\RETINOL
  7. METHYL PROTECT [Concomitant]
  8. HUMALOG [Concomitant]
     Active Substance: INSULIN LISPRO
  9. ZINC. [Concomitant]
     Active Substance: ZINC
  10. CREON [Concomitant]
     Active Substance: PANCRELIPASE AMYLASE\PANCRELIPASE LIPASE\PANCRELIPASE PROTEASE
  11. MAGNESIUM CHLORIDE;ZINC [Concomitant]
  12. AZTREONAM LYSINE [Suspect]
     Active Substance: AZTREONAM LYSINE
     Indication: CYSTIC FIBROSIS
     Dosage: 75 MG, TID 28 DAYS ON/OFF
     Route: 055
  13. SINGULAIR [Concomitant]
     Active Substance: MONTELUKAST SODIUM
  14. AZITHROMYCIN ANHYDROUS. [Concomitant]
     Active Substance: AZITHROMYCIN ANHYDROUS
  15. TRIKAFTA [Concomitant]
     Active Substance: ELEXACAFTOR\IVACAFTOR\TEZACAFTOR
  16. SPIRIVA [Concomitant]
     Active Substance: TIOTROPIUM BROMIDE MONOHYDRATE
  17. MULTIVITAMINS [VITAMINS NOS] [Concomitant]
     Active Substance: VITAMINS
  18. CO Q 10 [UBIDECARENONE] [Concomitant]
  19. VITAMIN E [Concomitant]
     Active Substance: .ALPHA.-TOCOPHEROL

REACTIONS (2)
  - Central venous catheterisation [Unknown]
  - Cystic fibrosis [Not Recovered/Not Resolved]
